FAERS Safety Report 5114969-3 (Version None)
Quarter: 2006Q3

REPORT INFORMATION
  Report Type: 
  Country: None (occurrence: None)
  Receive Date: 20060922
  Receipt Date: 20060912
  Transmission Date: 20061208
  Serious: No
  Sender: FDA-Public Use
  Company Number: 06H-163-0310240-00

PATIENT
  Age: 48 Year
  Sex: Male

DRUGS (3)
  1. BUPIVACAINE [Suspect]
     Indication: BACK PAIN
     Dosage: INTRATHECAL INFUSION
     Route: 037
  2. HYDROMORPHONE HCL [Suspect]
     Indication: BACK PAIN
     Dosage: INTRATHECAL INFUSION
     Route: 037
  3. MORPHINE SULFATE [Suspect]
     Indication: BACK PAIN
     Dosage: INTRATHECAL INFUSION
     Route: 037

REACTIONS (4)
  - CATHETER RELATED COMPLICATION [None]
  - INFUSION SITE MASS [None]
  - MUSCULAR WEAKNESS [None]
  - URINARY RETENTION [None]
